FAERS Safety Report 4811787-8 (Version None)
Quarter: 2005Q4

REPORT INFORMATION
  Report Type: 
  Country: None (occurrence: None)
  Receive Date: 20051027
  Receipt Date: 20051027
  Transmission Date: 20060501
  Serious: Yes (Hospitalization)
  Sender: FDA-Public Use
  Company Number: None

PATIENT
  Age: 80 Year
  Sex: Male
  Weight: 89.8 kg

DRUGS (11)
  1. SALSALATE [Suspect]
     Indication: ARTHRITIS
     Dosage: 2250MG +, 750MG TI, ORAL
     Route: 048
     Dates: start: 20050216
  2. SALSALATE [Suspect]
     Indication: CORONARY ARTERY DISEASE
     Dosage: 2250MG +, 750MG TI, ORAL
     Route: 048
     Dates: start: 20050216
  3. ASPIRIN [Suspect]
  4. SALSALATE [Concomitant]
  5. SIMVASTATIN [Concomitant]
  6. ASPIRIN [Concomitant]
  7. FUROSEMIDE [Concomitant]
  8. GLIPIZIDE [Concomitant]
  9. LISINOPRIL [Concomitant]
  10. METFORMIN HCL [Concomitant]
  11. QUININE SULFATE [Concomitant]

REACTIONS (2)
  - DUODENAL ULCER [None]
  - GASTRITIS [None]
